FAERS Safety Report 4357761-X (Version None)
Quarter: 2004Q2

REPORT INFORMATION
  Report Type: 
  Country: None (occurrence: None)
  Receive Date: 20040510
  Receipt Date: 20040430
  Transmission Date: 20050107
  Serious: Yes (Hospitalization)
  Sender: FDA-Public Use
  Company Number: 2004-05-0008

PATIENT
  Age: 44 Year
  Sex: Male

DRUGS (5)
  1. PEG-INTRON [Suspect]
     Indication: HEPATITIS C
     Dosage: 120 MCG QWK SUBCUTANEOUS
     Route: 058
     Dates: start: 20030908, end: 20040216
  2. REBETOL [Suspect]
     Indication: HEPATITIS C
     Dosage: *1-0.8 GM QD ORAL (SEE IMAGE)
     Route: 048
     Dates: start: 20030908, end: 20031101
  3. REBETOL [Suspect]
     Indication: HEPATITIS C
     Dosage: *1-0.8 GM QD ORAL (SEE IMAGE)
     Route: 048
     Dates: start: 20030908, end: 20040222
  4. REBETOL [Suspect]
     Indication: HEPATITIS C
     Dosage: *1-0.8 GM QD ORAL (SEE IMAGE)
     Route: 048
     Dates: start: 20031101, end: 20040222
  5. VOLTAREN [Concomitant]

REACTIONS (14)
  - ANAEMIA [None]
  - BLOOD PRESSURE INCREASED [None]
  - CARDIAC FAILURE [None]
  - CHEST PAIN [None]
  - COUGH [None]
  - GENERAL PHYSICAL HEALTH DETERIORATION [None]
  - HYPERTENSION [None]
  - MYALGIA [None]
  - PERICARDIAL EFFUSION [None]
  - PLEURAL EFFUSION [None]
  - RESPIRATORY DISTRESS [None]
  - TACHYCARDIA [None]
  - VENTRICULAR DYSFUNCTION [None]
  - VENTRICULAR HYPERTROPHY [None]
